FAERS Safety Report 18594812 (Version 1)
Quarter: 2020Q4

REPORT INFORMATION
  Report Type: Spontaneous
  Country: FR (occurrence: FR)
  Receive Date: 20201209
  Receipt Date: 20201209
  Transmission Date: 20210114
  Serious: Yes (Hospitalization)
  Sender: FDA-Public Use
  Company Number: FR-MYLANLABS-2020M1099388

PATIENT
  Age: 88 Year
  Sex: Female
  Weight: 109 kg

DRUGS (1)
  1. PIPERACILLIN AND TAZOBACTAM [Suspect]
     Active Substance: PIPERACILLIN SODIUM\TAZOBACTAM SODIUM
     Indication: CHOLECYSTITIS
     Dosage: 12 GRAM, QD
     Route: 041
     Dates: start: 20200928, end: 20201015

REACTIONS (4)
  - Transaminases increased [Recovered/Resolved]
  - Eosinophil count increased [Recovered/Resolved]
  - Cholestasis [Recovering/Resolving]
  - Dermatitis exfoliative generalised [Recovering/Resolving]

NARRATIVE: CASE EVENT DATE: 20201012
